FAERS Safety Report 7608704-4 (Version None)
Quarter: 2011Q3

REPORT INFORMATION
  Report Type: 
  Country: None (occurrence: None)
  Receive Date: 20110714
  Receipt Date: 20110706
  Transmission Date: 20111222
  Serious: Yes (Hospitalization, Other)
  Sender: FDA-Public Use
  Company Number: US-BAYER-2011-005762

PATIENT
  Age: 44 Year
  Sex: Female
  Weight: 68 kg

DRUGS (4)
  1. YASMIN [Suspect]
     Indication: CONTRACEPTION
     Dosage: UNK
     Dates: start: 20010101, end: 20060101
  2. NSAID'S [Concomitant]
     Dosage: UNK
     Dates: start: 20060101
  3. ANTIBIOTICS [Concomitant]
     Dosage: UNK
     Dates: start: 20060101
  4. ALLEGRA [Concomitant]
     Dosage: UNK
     Dates: start: 20010101, end: 20060101

REACTIONS (4)
  - DEEP VEIN THROMBOSIS [None]
  - PAIN [None]
  - ANXIETY [None]
  - EMOTIONAL DISTRESS [None]
